FAERS Safety Report 6694486-X (Version None)
Quarter: 2010Q2

REPORT INFORMATION
  Report Type: 
  Country: None (occurrence: None)
  Receive Date: 20100423
  Receipt Date: 20100416
  Transmission Date: 20101027
  Serious: Yes (Hospitalization)
  Sender: FDA-Public Use
  Company Number: SG-PFIZER INC-2008087680

PATIENT
  Age: 62 Year
  Sex: Male
  Weight: 62 kg

DRUGS (9)
  1. FLUOROURACIL [Suspect]
     Indication: COLORECTAL CANCER
     Dosage: 668 MG, EVERY 2 WEEKS
     Route: 042
     Dates: start: 20080922
  2. FLUOROURACIL [Suspect]
     Dosage: 4008 MG, EVERY 2 WEEKS
     Route: 042
     Dates: start: 20080922
  3. *PLACEBO [Suspect]
     Indication: COLORECTAL CANCER
     Dosage: 0 MG, 1X/DAY
     Route: 048
     Dates: start: 20080922
  4. IRINOTECAN HCL [Suspect]
     Indication: COLORECTAL CANCER
     Dosage: 300 MG, 1 EVERY 2 WEEKS
     Route: 042
     Dates: start: 20080922
  5. *CALCIUM FOLINATE [Suspect]
     Indication: COLORECTAL CANCER
     Dosage: 668 MG, EVERY 2 WEEKS
     Route: 042
     Dates: start: 20080922
  6. ATENOLOL [Suspect]
     Indication: HYPERTENSION
     Dosage: 100 MG ONCE EVERY MORNING
     Dates: start: 19800101, end: 20081014
  7. DEXAMETHASONE [Concomitant]
  8. SIMVASTATIN [Concomitant]
     Indication: HYPERLIPIDAEMIA
     Dosage: 10 MG ONCE EVERY MORNING
     Dates: start: 19800101, end: 20081014
  9. FELODIPINE [Concomitant]
     Indication: HYPERTENSION
     Dosage: 5 MG ONCE EVERY MORNING
     Dates: start: 19800101, end: 20081014

REACTIONS (2)
  - HYPOTENSION [None]
  - LUNG ABSCESS [None]
